FAERS Safety Report 5226269-1 (Version None)
Quarter: 2007Q1

REPORT INFORMATION
  Report Type: 
  Country: None (occurrence: None)
  Receive Date: 20070201
  Receipt Date: 20070119
  Transmission Date: 20070707
  Serious: Yes (Life-Threatening, Hospitalization, Other)
  Sender: FDA-Public Use
  Company Number: GB-MERCK-0701USA03446

PATIENT
  Age: 89 Year
  Sex: Female

DRUGS (11)
  1. PRINIVIL [Suspect]
     Route: 048
     Dates: end: 20061228
  2. ADCAL-D3 [Concomitant]
     Route: 065
  3. ASPIRIN [Concomitant]
     Route: 065
  4. ATORVASTATIN CALCIUM [Concomitant]
     Route: 048
  5. BISOPROLOL [Concomitant]
     Route: 048
  6. CLOPIDOGREL BISULFATE [Concomitant]
     Route: 048
  7. FUROSEMIDE [Concomitant]
     Route: 048
  8. FUROSEMIDE [Concomitant]
     Route: 048
  9. MEBEVERINE HYDROCHLORIDE [Concomitant]
     Route: 048
  10. NEXIUM [Concomitant]
     Route: 048
  11. PHENYTOIN [Concomitant]
     Route: 048

REACTIONS (2)
  - CHOKING [None]
  - SWOLLEN TONGUE [None]
